FAERS Safety Report 11111739 (Version 1)
Quarter: 2015Q2

REPORT INFORMATION
  Report Type: Not Available
  Country: US (occurrence: US)
  Receive Date: 20150514
  Receipt Date: 20150514
  Transmission Date: 20150821
  Serious: Yes (Hospitalization)
  Sender: FDA-Public Use
  Company Number: US-LUPIN PHARMACEUTICALS INC.-E2B_00003584

PATIENT
  Age: 77 Year
  Sex: Female
  Weight: 96.25 kg

DRUGS (1)
  1. LEVOFLOXACIN TABLETS 750 MG [Suspect]
     Active Substance: LEVOFLOXACIN
     Indication: PNEUMONIA
     Dates: start: 20150415, end: 20150417

REACTIONS (5)
  - Insomnia [Recovered/Resolved]
  - Hallucination, visual [Recovered/Resolved]
  - Asthenia [Not Recovered/Not Resolved]
  - Bronchitis [Recovered/Resolved]
  - Diarrhoea [Not Recovered/Not Resolved]

NARRATIVE: CASE EVENT DATE: 20150415
